FAERS Safety Report 8006481-9 (Version None)
Quarter: 2011Q4

REPORT INFORMATION
  Report Type: 
  Country: None (occurrence: None)
  Receive Date: 20111226
  Receipt Date: 20111216
  Transmission Date: 20120403
  Serious: Yes (Hospitalization, Other)
  Sender: FDA-Public Use
  Company Number: PHHY2011FR110611

PATIENT
  Age: 12 Year
  Sex: Male

DRUGS (4)
  1. FOSCARNET [Concomitant]
  2. MYCOPHENOLATE MOFETIL [Concomitant]
     Indication: PROPHYLAXIS AGAINST GRAFT VERSUS HOST DISEASE
  3. CYCLOSPORINE [Suspect]
     Indication: PROPHYLAXIS AGAINST GRAFT VERSUS HOST DISEASE
  4. CIDOFOVIR [Concomitant]

REACTIONS (5)
  - HERPES ZOSTER [None]
  - HEPATITIS E ANTIBODY POSITIVE [None]
  - HEPATITIS E [None]
  - ALANINE AMINOTRANSFERASE INCREASED [None]
  - CYTOLYTIC HEPATITIS [None]
